FAERS Safety Report 23713095 (Version 1)
Quarter: 2024Q2

REPORT INFORMATION
  Report Type: Spontaneous
  Country: CN (occurrence: CN)
  Receive Date: 20240405
  Receipt Date: 20240405
  Transmission Date: 20240716
  Serious: Yes (Hospitalization)
  Sender: FDA-Public Use
  Company Number: None

PATIENT
  Age: 57 Year
  Sex: Female
  Weight: 61 kg

DRUGS (2)
  1. CYCLOPHOSPHAMIDE [Suspect]
     Active Substance: CYCLOPHOSPHAMIDE
     Indication: Breast cancer female
     Dosage: 0.8 G, ONCE, DILUTED WITH 100 ML OF SODIUM CHLORIDE, START TIME: 09:43
     Route: 041
     Dates: start: 20240320, end: 20240320
  2. SODIUM CHLORIDE [Suspect]
     Active Substance: SODIUM CHLORIDE
     Indication: Medication dilution
     Dosage: 100 ML, ONCE, USED TO DILUTE 0.8 G OF CYCLOPHOSPHAMIDE, START TIME: 09:43
     Route: 041
     Dates: start: 20240320, end: 20240320

REACTIONS (3)
  - Pollakiuria [Recovering/Resolving]
  - Abdominal pain lower [Recovered/Resolved]
  - Micturition urgency [Unknown]

NARRATIVE: CASE EVENT DATE: 20240320
